FAERS Safety Report 18387129 (Version 1)
Quarter: 2020Q4

REPORT INFORMATION
  Report Type: Spontaneous
  Country: US (occurrence: US)
  Receive Date: 20201015
  Receipt Date: 20201015
  Transmission Date: 20210114
  Serious: No
  Sender: FDA-Public Use
  Company Number: US-MYLANLABS-2020M1084639

PATIENT
  Sex: Female
  Weight: 48 kg

DRUGS (1)
  1. XULANE [Suspect]
     Active Substance: ETHINYL ESTRADIOL\NORELGESTROMIN
     Indication: CONTRACEPTION
     Dosage: UNK, 150MCG/DAY REPLACE PATCH EVERY WEEK FOR 3 WEEKS, THEN OFF FOR ONE WEEK
     Route: 062

REACTIONS (3)
  - Off label use [Not Recovered/Not Resolved]
  - Menorrhagia [Not Recovered/Not Resolved]
  - Device use error [Unknown]
